FAERS Safety Report 8926989 (Version 1)
Quarter: 2012Q4

REPORT INFORMATION
  Report Type: 
  Country: FR (occurrence: FR)
  Receive Date: 20121127
  Receipt Date: 20121127
  Transmission Date: 20130627
  Serious: Yes (Other)
  Sender: FDA-Public Use
  Company Number: FR-ASTRAZENECA-2012SE89261

PATIENT
  Age: 460 Day
  Sex: Female

DRUGS (1)
  1. SYNAGIS [Suspect]
     Route: 030
     Dates: start: 20121022

REACTIONS (3)
  - Bronchiolitis [Unknown]
  - Rhinorrhoea [Unknown]
  - Cough [Unknown]
